FAERS Safety Report 9230068 (Version 1)
Quarter: 2013Q2

REPORT INFORMATION
  Report Type: Spontaneous
  Country: US (occurrence: None)
  Receive Date: 20130411
  Receipt Date: 20130411
  Transmission Date: 20140414
  Serious: Yes (Other)
  Sender: FDA-Public Use
  Company Number: 303100032-AKO-5180

PATIENT
  Age: 28 Year
  Sex: Female

DRUGS (1)
  1. THERATEARS LUBRICANT [Suspect]
     Indication: FOREIGN BODY IN EYE
     Dosage: 1 UNIT, TWICE, TOPICAL?
     Route: 061
     Dates: start: 20130320, end: 20130320

REACTIONS (4)
  - Burning sensation [None]
  - Swelling [None]
  - Lacrimation increased [None]
  - Chemical burns of eye [None]
